FAERS Safety Report 9694882 (Version 1)
Quarter: 2013Q4

REPORT INFORMATION
  Report Type: Spontaneous
  Country: US (occurrence: US)
  Receive Date: 20131119
  Receipt Date: 20131119
  Transmission Date: 20140711
  Serious: Yes (Other)
  Sender: FDA-Public Use
  Company Number: US-PFIZER INC-2013328137

PATIENT
  Age: 46 Year
  Sex: Female
  Weight: 63.49 kg

DRUGS (6)
  1. NEURONTIN [Suspect]
     Indication: FIBROMYALGIA
     Dosage: 300 MG, 6X/DAY
     Dates: start: 2013, end: 2013
  2. NEURONTIN [Suspect]
     Dosage: 100 MG, 2X/DAY
     Dates: start: 2013, end: 2013
  3. NEURONTIN [Suspect]
     Dosage: 300 MG, 3X/DAY
     Dates: start: 201311, end: 201311
  4. CYMBALTA [Suspect]
     Indication: DEPRESSION
     Dosage: 60 MG, UNK
  5. CYMBALTA [Suspect]
     Indication: PAIN
  6. LYRICA [Concomitant]
     Indication: FIBROMYALGIA
     Dosage: UNK
     Dates: end: 20131103

REACTIONS (7)
  - Intentional drug misuse [Not Recovered/Not Resolved]
  - Suicidal ideation [Not Recovered/Not Resolved]
  - Feeling abnormal [Not Recovered/Not Resolved]
  - Diarrhoea [Not Recovered/Not Resolved]
  - Nausea [Not Recovered/Not Resolved]
  - Vomiting [Not Recovered/Not Resolved]
  - Drug ineffective [Not Recovered/Not Resolved]
